FAERS Safety Report 9963006 (Version 1)
Quarter: 2014Q1

REPORT INFORMATION
  Report Type: Spontaneous
  Country: US (occurrence: US)
  Receive Date: 20140305
  Receipt Date: 20140305
  Transmission Date: 20141002
  Serious: No
  Sender: FDA-Public Use
  Company Number: US-TARO-2013P1018789

PATIENT
  Age: 50 Year
  Sex: Female
  Weight: 63.5 kg

DRUGS (3)
  1. NYSTATIN CREAM USP 100,000 UNITS/G [Suspect]
     Route: 061
     Dates: start: 20130819, end: 20130819
  2. VITAMINS [Concomitant]
  3. GENERIC SYNTHROID [Concomitant]
     Dates: start: 2008

REACTIONS (2)
  - Nausea [Recovered/Resolved]
  - Headache [Recovered/Resolved]
